FAERS Safety Report 12090860 (Version 8)
Quarter: 2020Q1

REPORT INFORMATION
  Report Type: Report from Study
  Country: US (occurrence: US)
  Receive Date: 20160218
  Receipt Date: 20200323
  Transmission Date: 20200409
  Serious: Yes (Other)
  Sender: FDA-Public Use
  Company Number: PHHY2016US019516

PATIENT
  Age: 41 Year
  Sex: Female
  Weight: 131 kg

DRUGS (6)
  1. GILENYA [Suspect]
     Active Substance: FINGOLIMOD HYDROCHLORIDE
     Indication: MULTIPLE SCLEROSIS
     Dosage: 0.5 MG, QD
     Route: 048
     Dates: end: 20180914
  2. IBUPROFEN. [Concomitant]
     Active Substance: IBUPROFEN
     Indication: HEADACHE
     Dosage: 200 MG, UNK
     Route: 065
     Dates: start: 20030313
  3. NUVIGIL [Concomitant]
     Active Substance: ARMODAFINIL
     Indication: FATIGUE
     Dosage: 150 MG, UNK
     Route: 065
     Dates: start: 20150227, end: 20151211
  4. MULTIVITAMINS [Concomitant]
     Active Substance: VITAMINS
     Indication: PRODUCT USED FOR UNKNOWN INDICATION
     Dosage: 1 DF, UNK
     Route: 065
     Dates: start: 20130621
  5. SYMMETREL [Concomitant]
     Active Substance: AMANTADINE HYDROCHLORIDE
     Indication: DYSKINESIA
     Dosage: 100 MG, UNK
     Route: 065
     Dates: start: 20150318, end: 20170823
  6. LEVOTHYROXINE. [Concomitant]
     Active Substance: LEVOTHYROXINE
     Indication: HYPOTHYROIDISM
     Dosage: UNK
     Route: 065
     Dates: start: 20160425

REACTIONS (11)
  - Fatigue [Recovered/Resolved]
  - CD4 lymphocytes decreased [Recovered/Resolved]
  - Pulmonary function test abnormal [Unknown]
  - Cough [Recovered/Resolved]
  - Aspartate aminotransferase decreased [Unknown]
  - Sleep apnoea syndrome [Not Recovered/Not Resolved]
  - Hiatus hernia [Recovered/Resolved]
  - Xanthoma [Not Recovered/Not Resolved]
  - Lymphocyte count decreased [Recovered/Resolved]
  - Vitamin D decreased [Unknown]
  - Binge eating [Not Recovered/Not Resolved]

NARRATIVE: CASE EVENT DATE: 20150709
